FAERS Safety Report 23099571 (Version 2)
Quarter: 2025Q3

REPORT INFORMATION
  Report Type: Spontaneous
  Country: US (occurrence: US)
  Receive Date: 20231024
  Receipt Date: 20250924
  Transmission Date: 20251020
  Serious: No
  Sender: SANOFI AVENTIS
  Company Number: US-SA-2023SA325221

PATIENT
  Age: 16 Year
  Sex: Female

DRUGS (1)
  1. DUPIXENT [Suspect]
     Active Substance: DUPILUMAB
     Dosage: 300MG QOW
     Route: 058

REACTIONS (6)
  - Abdominal pain upper [Recovered/Resolved]
  - Erythema of eyelid [Unknown]
  - Pruritus [Unknown]
  - Skin exfoliation [Unknown]
  - Erythema [Unknown]
  - Facial pain [Unknown]

NARRATIVE: CASE EVENT DATE: 20230918
